FAERS Safety Report 13897045 (Version 1)
Quarter: 2017Q3

REPORT INFORMATION
  Report Type: Spontaneous
  Country: US (occurrence: US)
  Receive Date: 20170823
  Receipt Date: 20170823
  Transmission Date: 20171127
  Serious: No
  Sender: FDA-Public Use
  Company Number: US-GLAXOSMITHKLINE-US2012000671

PATIENT

DRUGS (2)
  1. NICORETTE [Suspect]
     Active Substance: NICOTINE
     Indication: SMOKING CESSATION THERAPY
     Dosage: 4 MG, UNK, CHEWING 2 AT THE TIME
  2. NICORETTE [Suspect]
     Active Substance: NICOTINE
     Dosage: 1 DF, UNK

REACTIONS (1)
  - Incorrect dose administered [Unknown]
